FAERS Safety Report 7985479 (Version 3)
Quarter: 2012Q4

REPORT INFORMATION
  Report Type: 
  Country: US (occurrence: US)
  Receive Date: 20110610
  Receipt Date: 20121105
  Transmission Date: 20130627
  Serious: Yes (Other)
  Sender: FDA-Public Use
  Company Number: US-PFIZER INC-2011122365

PATIENT
  Age: 76 Year
  Sex: Male
  Weight: 83.9 kg

DRUGS (5)
  1. SUTENT [Suspect]
     Indication: RENAL CANCER
     Dosage: 50 mg, 1x/day
     Route: 048
     Dates: start: 201104, end: 2011
  2. SUTENT [Suspect]
     Indication: RENAL CANCER METASTATIC
     Dosage: 37.5 mg, daily
     Route: 048
     Dates: start: 2011
  3. AMLODIPINE [Concomitant]
     Indication: BLOOD PRESSURE HIGH
     Dosage: UNK
  4. WARFARIN [Concomitant]
     Dosage: UNK
  5. SYNTHROID [Concomitant]
     Indication: THYROIDECTOMY
     Dosage: UNK

REACTIONS (13)
  - Hypertension [Not Recovered/Not Resolved]
  - Oedema peripheral [Not Recovered/Not Resolved]
  - Localised infection [Not Recovered/Not Resolved]
  - Blister [Not Recovered/Not Resolved]
  - Ageusia [Not Recovered/Not Resolved]
  - Swelling [Not Recovered/Not Resolved]
  - Abdominal discomfort [Not Recovered/Not Resolved]
  - Fatigue [Not Recovered/Not Resolved]
  - Gastrointestinal disorder [Unknown]
  - Nasopharyngitis [Unknown]
  - Chills [Unknown]
  - Pain in extremity [Unknown]
  - Skin exfoliation [Unknown]
